FAERS Safety Report 22589155 (Version 1)
Quarter: 2023Q2

REPORT INFORMATION
  Report Type: Spontaneous
  Country: US (occurrence: US)
  Receive Date: 20230612
  Receipt Date: 20230612
  Transmission Date: 20230721
  Serious: No
  Sender: FDA-Public Use
  Company Number: US-BAYER-2023A077988

PATIENT
  Age: 64 Year
  Sex: Female

DRUGS (3)
  1. CLARITIN [Suspect]
     Active Substance: LORATADINE
     Indication: Hypersensitivity
     Dosage: 1 TAB WHEN NEEDED
     Route: 048
     Dates: start: 2018
  2. CLARITIN [Suspect]
     Active Substance: LORATADINE
     Indication: Nasopharyngitis
  3. METOPROLOL [Concomitant]
     Active Substance: METOPROLOL
     Indication: Prophylaxis
     Dosage: 50 MG, QD
     Route: 048
     Dates: start: 2019

REACTIONS (1)
  - Extra dose administered [Recovered/Resolved]

NARRATIVE: CASE EVENT DATE: 20230531
